FAERS Safety Report 7537310-5 (Version None)
Quarter: 2011Q2

REPORT INFORMATION
  Report Type: 
  Country: None (occurrence: None)
  Receive Date: 20110609
  Receipt Date: 20110603
  Transmission Date: 20111010
  Serious: Yes (Other)
  Sender: FDA-Public Use
  Company Number: US-AMGEN-USASP2011028986

PATIENT
  Sex: Female

DRUGS (10)
  1. CRESTOR [Concomitant]
  2. LEVOCETIRIZINE DIHYDROCHLORIDE [Concomitant]
  3. NIFEDIPINE [Concomitant]
  4. NEPHRO VITE RX [Concomitant]
  5. RENAGEL                            /01459901/ [Concomitant]
  6. TEMAZEPAM [Concomitant]
  7. WHOLE BLOOD [Concomitant]
  8. METOCLOPRAMIDE [Concomitant]
  9. PLAVIX [Concomitant]
  10. EPOGEN [Suspect]
     Indication: RENAL FAILURE CHRONIC

REACTIONS (2)
  - DRUG INEFFECTIVE [None]
  - THERAPEUTIC RESPONSE DECREASED [None]
